FAERS Safety Report 8482498-5 (Version None)
Quarter: 2012Q3

REPORT INFORMATION
  Report Type: 
  Country: None (occurrence: None)
  Receive Date: 20120702
  Receipt Date: 20120625
  Transmission Date: 20120928
  Serious: Yes (Hospitalization)
  Sender: FDA-Public Use
  Company Number: US-B.I. PHARMACEUTICALS,INC./RIDGEFIELD-2012-BP-14375BP

PATIENT
  Sex: Male

DRUGS (1)
  1. PRADAXA [Suspect]
     Dosage: 300 MG
     Dates: start: 20110221, end: 20110519

REACTIONS (3)
  - EMBOLIC STROKE [None]
  - RENAL ARTERY OCCLUSION [None]
  - RETROPERITONEAL HAEMORRHAGE [None]
